FAERS Safety Report 5855739-8 (Version None)
Quarter: 2008Q3

REPORT INFORMATION
  Report Type: 
  Country: None (occurrence: None)
  Receive Date: 20080825
  Receipt Date: 20080723
  Transmission Date: 20090109
  Serious: No
  Sender: FDA-Public Use
  Company Number: US-BAYER-200828877NA

PATIENT

DRUGS (3)
  1. CAMPATH [Suspect]
     Indication: CHRONIC LYMPHOCYTIC LEUKAEMIA
     Dosage: AS USED: 30 MG
     Route: 042
     Dates: start: 20080718
  2. TYLENOL [Concomitant]
     Indication: PREMEDICATION
  3. BENADRYL [Concomitant]
     Indication: PREMEDICATION

REACTIONS (4)
  - CHILLS [None]
  - INJECTION SITE REACTION [None]
  - NAUSEA [None]
  - PYREXIA [None]
